FAERS Safety Report 6701385-3 (Version None)
Quarter: 2010Q2

REPORT INFORMATION
  Report Type: 
  Country: None (occurrence: None)
  Receive Date: 20100429
  Receipt Date: 20100421
  Transmission Date: 20101027
  Serious: No
  Sender: FDA-Public Use
  Company Number: US-BIOGENIDEC-2010BI013779

PATIENT
  Sex: Female

DRUGS (3)
  1. TYSABRI [Suspect]
     Indication: MULTIPLE SCLEROSIS
     Route: 042
     Dates: start: 20070209, end: 20070606
  2. TYSABRI [Suspect]
     Route: 042
     Dates: start: 20070730, end: 20071016
  3. TYSABRI [Suspect]
     Route: 042
     Dates: start: 20080128, end: 20100104

REACTIONS (1)
  - MUSCULAR WEAKNESS [None]
